FAERS Safety Report 8597983-5 (Version None)
Quarter: 2012Q3

REPORT INFORMATION
  Report Type: 
  Country: None (occurrence: None)
  Receive Date: 20120816
  Receipt Date: 20120808
  Transmission Date: 20120928
  Serious: Yes (Hospitalization, Other)
  Sender: FDA-Public Use
  Company Number: US-PFIZER INC-2012062038

PATIENT
  Age: 29 Year
  Sex: Male

DRUGS (3)
  1. DILANTIN [Suspect]
     Dosage: 200 MG, 1X/DAY (AT BED TIME)
     Route: 048
     Dates: start: 20101201, end: 20101226
  2. CIPROFLOXACIN [Concomitant]
     Indication: LYMPHADENOPATHY
     Dosage: 500 MG, 1X/DAY
     Route: 048
     Dates: start: 20101220, end: 20101226
  3. DILANTIN [Suspect]
     Indication: CONVULSION
     Dosage: 100MG CAPSULE THREE CAPSULES AT BEDTIME
     Route: 048
     Dates: start: 20101206, end: 20101201

REACTIONS (1)
  - STEVENS-JOHNSON SYNDROME [None]
